FAERS Safety Report 21686640 (Version 4)
Quarter: 2023Q4

REPORT INFORMATION
  Report Type: Report from Study
  Country: US (occurrence: US)
  Receive Date: 20221206
  Receipt Date: 20231228
  Transmission Date: 20240110
  Serious: Yes (Other)
  Sender: FDA-Public Use
  Company Number: US-ABBVIE-4223964

PATIENT
  Sex: Male

DRUGS (13)
  1. VENCLEXTA [Suspect]
     Active Substance: VENETOCLAX
     Indication: Mantle cell lymphoma
     Dosage: TAKE 20 MILLIGRAMS DAILY ON WEEK 1?FORM STRENGTH 20 MILLIGRAMS?EVERY DAY WITH A MEAL AND WATER AT...
     Route: 048
     Dates: start: 20230117
  2. VENCLEXTA [Suspect]
     Active Substance: VENETOCLAX
     Indication: Mantle cell lymphoma
     Dosage: TAKE 50 MILLIGRAMS DAILY ON WEEK 2?FORM STRENGTH 50 MILLIGRAMS?EVERY DAY WITH A MEAL AND WATER AT...
     Route: 048
  3. VENCLEXTA [Suspect]
     Active Substance: VENETOCLAX
     Indication: Mantle cell lymphoma
     Dosage: TAKE 100 MILLIGRAMS DAILY ON WEEK 3?FORM STRENGTH 100 MILLIGRAMS?EVERY DAY WITH A MEAL AND WATER ...
     Route: 048
  4. VENCLEXTA [Suspect]
     Active Substance: VENETOCLAX
     Indication: Mantle cell lymphoma
     Dosage: TAKE 200 MILLIGRAMS DAILY ON WEEK 4?FORM STRENGTH 100 MILLIGRAMS?EVERY DAY WITH A MEAL AND WATER ...
     Route: 048
  5. VENCLEXTA [Suspect]
     Active Substance: VENETOCLAX
     Indication: Mantle cell lymphoma
     Dosage: FORM STRENGTH 100 MILLIGRAMS?FOUR TABLETS BY MOUTH EVERY DAY?EVERY DAY WITH A MEAL AND WATER AT A...
     Route: 048
  6. CALQUENCE [Concomitant]
     Active Substance: ACALABRUTINIB
     Indication: Product used for unknown indication
  7. HYTRIN [Concomitant]
     Active Substance: TERAZOSIN HYDROCHLORIDE
     Indication: Product used for unknown indication
     Dosage: 1 CAPSULE BY MOUTH AT BEDTIME
  8. PRILOSEC [Concomitant]
     Active Substance: OMEPRAZOLE MAGNESIUM
     Indication: Product used for unknown indication
  9. AVAPRO [Concomitant]
     Active Substance: IRBESARTAN
     Indication: Product used for unknown indication
  10. AMOXIL [Concomitant]
     Active Substance: AMOXICILLIN
     Indication: Product used for unknown indication
     Dosage: 4 CAPSULE 1 HOUR PRIOR TO DENTAL WORK
  11. CRESTOR [Concomitant]
     Active Substance: ROSUVASTATIN CALCIUM
     Indication: Product used for unknown indication
  12. COMPAZINE [Concomitant]
     Active Substance: PROCHLORPERAZINE MALEATE
     Indication: Nausea
     Dosage: 1TABLET 6HOURS
  13. ANAPROX [Concomitant]
     Active Substance: NAPROXEN SODIUM
     Indication: Product used for unknown indication

REACTIONS (2)
  - Coronary artery disease [Unknown]
  - Off label use [Unknown]

NARRATIVE: CASE EVENT DATE: 20230101
